FAERS Safety Report 15716838 (Version 1)
Quarter: 2018Q4

REPORT INFORMATION
  Report Type: Spontaneous
  Country: DE (occurrence: DE)
  Receive Date: 20181213
  Receipt Date: 20181213
  Transmission Date: 20190205
  Serious: Yes (Life-Threatening, Hospitalization, Other)
  Sender: FDA-Public Use
  Company Number: DE-AUROBINDO-AUR-APL-2018-059759

PATIENT
  Age: 29 Year
  Sex: Female

DRUGS (1)
  1. QUETIAPINE. [Suspect]
     Active Substance: QUETIAPINE
     Indication: SUICIDE ATTEMPT
     Dosage: UNK
     Route: 065

REACTIONS (9)
  - Seizure [Recovered/Resolved]
  - Live birth [Recovered/Resolved]
  - Suicide attempt [Recovered/Resolved]
  - Blood pressure decreased [Recovered/Resolved]
  - Toxicity to various agents [Recovered/Resolved]
  - Tachycardia [Recovered/Resolved]
  - Somnolence [Recovered/Resolved]
  - Maternal exposure during pregnancy [Unknown]
  - Coma [Recovered/Resolved]
